FAERS Safety Report 4886013-4 (Version None)
Quarter: 2006Q1

REPORT INFORMATION
  Report Type: 
  Country: None (occurrence: None)
  Receive Date: 20060117
  Receipt Date: 20060104
  Transmission Date: 20060701
  Serious: Yes (Hospitalization)
  Sender: FDA-Public Use
  Company Number: 2005S1000452

PATIENT
  Age: 60 Year
  Sex: Female

DRUGS (3)
  1. ACITRETIN                 (ACITRETIN) [Suspect]
     Indication: PUSTULAR PSORIASIS
     Dosage: 10 MG TID PO
     Route: 048
     Dates: start: 20050315, end: 20051015
  2. FLOXACILLIN [Concomitant]
  3. MALARONE [Concomitant]

REACTIONS (11)
  - ALOPECIA [None]
  - BLOOD BILIRUBIN INCREASED [None]
  - CHROMATURIA [None]
  - DRY SKIN [None]
  - FAECES DISCOLOURED [None]
  - HEPATOTOXICITY [None]
  - JAUNDICE [None]
  - LIPIDS ABNORMAL [None]
  - LIVER FUNCTION TEST ABNORMAL [None]
  - NAUSEA [None]
  - SKIN DISORDER [None]
